FAERS Safety Report 10168367 (Version 2)
Quarter: 2014Q2

REPORT INFORMATION
  Report Type: Spontaneous
  Country: ZA (occurrence: ZA)
  Receive Date: 20140513
  Receipt Date: 20140620
  Transmission Date: 20141212
  Serious: Yes (Other)
  Sender: FDA-Public Use
  Company Number: PHHY2014ZA054641

PATIENT
  Age: 36 Year
  Sex: Male

DRUGS (14)
  1. VALPROIC ACID [Suspect]
     Indication: BIPOLAR I DISORDER
  2. VALPROIC ACID [Suspect]
     Indication: MANIA
     Dosage: 1000 MG, BID
  3. CLOZAPINE [Suspect]
     Indication: MANIA
  4. CARBAMAZEPINE [Suspect]
     Indication: MANIA
  5. HALOPERIDOL [Suspect]
     Indication: BIPOLAR I DISORDER
  6. HALOPERIDOL [Suspect]
     Indication: MANIA
  7. ARIPIPRAZOLE [Suspect]
     Indication: MANIA
  8. QUETIAPINE [Suspect]
     Indication: MANIA
  9. OLANZAPINE [Suspect]
     Indication: MANIA
  10. OLANZAPINE [Suspect]
     Dosage: 20 MG, BID
  11. LITHIUM CARBONATE [Suspect]
     Indication: MANIA
  12. RESERPINE [Concomitant]
     Indication: MANIA
  13. RESERPINE [Concomitant]
     Dosage: 1 MG, BID
  14. ANTIHYPERTENSIVES [Concomitant]
     Indication: HYPERTENSION

REACTIONS (2)
  - Neuroleptic malignant syndrome [Unknown]
  - Drug ineffective [Unknown]
